FAERS Safety Report 4705778-5 (Version None)
Quarter: 2005Q2

REPORT INFORMATION
  Report Type: 
  Country: None (occurrence: None)
  Receive Date: 20050629
  Receipt Date: 20050615
  Transmission Date: 20051028
  Serious: Yes (Hospitalization)
  Sender: FDA-Public Use
  Company Number: DSA_26631_2005

PATIENT
  Age: 60 Year
  Sex: Female

DRUGS (12)
  1. TAVOR [Suspect]
     Dosage: UNK
     Dates: start: 20050611, end: 20050611
  2. ARTREN [Suspect]
     Dosage: 10 TAB ONCE PO
     Route: 048
     Dates: start: 20050611, end: 20050611
  3. ALCOHOL [Suspect]
     Dosage: UNK
     Route: 065
     Dates: start: 20050611, end: 20050611
  4. METOPROLOL SUCCINATE [Suspect]
     Dosage: 10 TAB ONCE PO
     Route: 048
     Dates: start: 20050611, end: 20050611
  5. BUSCOPAN PLUS [Suspect]
     Dosage: 20 TAB ONCE PO
     Route: 048
     Dates: start: 20050611, end: 20050611
  6. CEFIXIME [Suspect]
     Dosage: 2 TAB ONCE PO
     Route: 048
     Dates: start: 20050611, end: 20050611
  7. INSIDON [Suspect]
     Dosage: 2000 MG ONCE PO
     Route: 048
     Dates: start: 20050611, end: 20050611
  8. NOVALOIN [Suspect]
     Dosage: UNK
     Route: 065
     Dates: start: 20050611, end: 20050611
  9. OPTALIDON N [Suspect]
     Dosage: 10 TAB ONCE PO
     Route: 048
     Dates: start: 20050611, end: 20050611
  10. ACETAMINOPHEN [Suspect]
     Dosage: 5000 MG ONCE PO
     Route: 048
     Dates: start: 20050611, end: 20050611
  11. STILNOX [Suspect]
     Dosage: VAR ONCE PO
     Route: 048
     Dates: start: 20050611, end: 20050611
  12. TRAMADOL HCL [Suspect]
     Dosage: UNK
     Route: 065
     Dates: start: 20050611, end: 20050611

REACTIONS (5)
  - BRADYCARDIA [None]
  - INTENTIONAL MISUSE [None]
  - MULTIPLE DRUG OVERDOSE [None]
  - SOMNOLENCE [None]
  - TACHYCARDIA [None]
